FAERS Safety Report 11409001 (Version 3)
Quarter: 2016Q3

REPORT INFORMATION
  Report Type: Spontaneous
  Country: CA (occurrence: CA)
  Receive Date: 20150824
  Receipt Date: 20160705
  Transmission Date: 20161109
  Serious: Yes (Other)
  Sender: FDA-Public Use
  Company Number: CA-AMGEN-CANSP2015043431

PATIENT
  Age: 87 Year
  Sex: Male
  Weight: 61 kg

DRUGS (10)
  1. CAFFEINE. [Concomitant]
     Active Substance: CAFFEINE
     Dosage: 300 MG, UNK
     Dates: start: 20150330
  2. FINASTERIDE. [Concomitant]
     Active Substance: FINASTERIDE
  3. PREDNISONE. [Concomitant]
     Active Substance: PREDNISONE
     Dosage: 5 MG, UNK
     Dates: start: 20150417
  4. VITAMIN D                          /00107901/ [Concomitant]
     Active Substance: ERGOCALCIFEROL
  5. ZYLOPRIN [Concomitant]
  6. LIPITOR [Concomitant]
     Active Substance: ATORVASTATIN CALCIUM
     Indication: BLOOD CHOLESTEROL
  7. ARANESP [Suspect]
     Active Substance: DARBEPOETIN ALFA
     Indication: CHRONIC KIDNEY DISEASE
     Dosage: UNK
     Route: 065
     Dates: start: 20130826
  8. ALLOPURINOL. [Concomitant]
     Active Substance: ALLOPURINOL
     Dosage: 100 MG, UNK
     Dates: start: 20150326
  9. ACETAMINOPHEN. [Concomitant]
     Active Substance: ACETAMINOPHEN
     Dosage: 300 MG, UNK
     Dates: start: 20150330
  10. LINAGLIPTIN [Concomitant]
     Active Substance: LINAGLIPTIN
     Dosage: 5 MG, UNK
     Dates: start: 20150326

REACTIONS (5)
  - Therapy non-responder [Not Recovered/Not Resolved]
  - Laboratory test abnormal [Unknown]
  - Anti-erythropoietin antibody positive [Unknown]
  - Haemoglobin abnormal [Unknown]
  - Aplastic anaemia [Unknown]

NARRATIVE: CASE EVENT DATE: 201303
